FAERS Safety Report 21994116 (Version 1)
Quarter: 2023Q1

REPORT INFORMATION
  Report Type: Spontaneous
  Country: NL (occurrence: None)
  Receive Date: 20230215
  Receipt Date: 20230215
  Transmission Date: 20230417
  Serious: Yes (Hospitalization)
  Sender: FDA-Public Use
  Company Number: 2023A031170

PATIENT
  Sex: Female
  Weight: 95 kg

DRUGS (2)
  1. TICAGRELOR [Suspect]
     Active Substance: TICAGRELOR
     Indication: Stent placement
     Dosage: 99 MG TWICE A DAY
     Route: 048
     Dates: start: 20220512
  2. TICAGRELOR [Suspect]
     Active Substance: TICAGRELOR
     Indication: Myocardial infarction
     Dosage: 99 MG TWICE A DAY
     Route: 048
     Dates: start: 20220512

REACTIONS (2)
  - Hyperventilation [Not Recovered/Not Resolved]
  - Dyspnoea [Not Recovered/Not Resolved]
